FAERS Safety Report 17286989 (Version 1)
Quarter: 2020Q1

REPORT INFORMATION
  Report Type: Spontaneous
  Country: IT (occurrence: IT)
  Receive Date: 20200120
  Receipt Date: 20200120
  Transmission Date: 20200409
  Serious: Yes (Other)
  Sender: FDA-Public Use
  Company Number: IT-TEVA-2020-IT-1169466

PATIENT
  Age: 51 Year
  Sex: Male

DRUGS (14)
  1. DEXAMETHASONE. [Concomitant]
     Active Substance: DEXAMETHASONE
     Dosage: 12MG
     Route: 042
  2. TRUXIMA [Suspect]
     Active Substance: RITUXIMAB-ABBS
     Indication: MANTLE CELL LYMPHOMA STAGE IV
     Dosage: 791.3MG PER CYCLICAL
     Route: 042
     Dates: start: 20191104, end: 20191104
  3. KEPPRA [Concomitant]
     Active Substance: LEVETIRACETAM
     Dosage: 1 GRAM
     Route: 048
  4. TAZOCIN [Suspect]
     Active Substance: PIPERACILLIN SODIUM\TAZOBACTAM SODIUM
     Indication: PYREXIA
     Dosage: 4.5 GRAM PER DAY
     Route: 042
     Dates: start: 20191115, end: 20191119
  5. BACTRIM [Concomitant]
     Active Substance: SULFAMETHOXAZOLE\TRIMETHOPRIM
     Dosage: 1 DOSAGE FORM
     Route: 048
  6. BINOCRIT [Concomitant]
     Active Substance: ERYTHROPOIETIN
     Dosage: 40KU
  7. FLUAD NOS [Suspect]
     Active Substance: INFLUENZA VIRUS VACCINE
     Indication: ANTIVIRAL PROPHYLAXIS
     Dosage: 1 DOSAGE FORM
     Route: 030
     Dates: start: 20191104, end: 20191104
  8. AMIKACIN. [Suspect]
     Active Substance: AMIKACIN
     Indication: PYREXIA
     Dosage: 1 GRAM PER DAY
     Route: 042
     Dates: start: 20191115, end: 20191119
  9. TRIATEC [Concomitant]
     Dosage: 5MG
     Route: 048
  10. LOBIVON [Concomitant]
     Active Substance: NEBIVOLOL HYDROCHLORIDE
     Dosage: 5MG
     Route: 048
  11. NORVASC [Concomitant]
     Active Substance: AMLODIPINE BESYLATE
     Dosage: 10MG
     Route: 048
  12. DIBASE [Concomitant]
     Active Substance: CHOLECALCIFEROL
     Dosage: 25KU
     Route: 048
  13. METHOTREXATE. [Suspect]
     Active Substance: METHOTREXATE
     Indication: MANTLE CELL LYMPHOMA STAGE IV
     Dosage: 7385MG PER CYCLICAL
     Route: 042
     Dates: start: 20191104, end: 20191104
  14. LANSOX [Concomitant]
     Active Substance: LANSOPRAZOLE
     Dosage: 30MG

REACTIONS (1)
  - Guillain-Barre syndrome [Not Recovered/Not Resolved]

NARRATIVE: CASE EVENT DATE: 20191119
